FAERS Safety Report 9900448 (Version 1)
Quarter: 2014Q1

REPORT INFORMATION
  Report Type: Spontaneous
  Country: US (occurrence: US)
  Receive Date: 20140217
  Receipt Date: 20140217
  Transmission Date: 20141002
  Serious: Yes (Other)
  Sender: FDA-Public Use
  Company Number: US-AMGEN-USASP2014010237

PATIENT
  Age: 74 Year
  Sex: Female

DRUGS (4)
  1. PROLIA [Suspect]
     Indication: OSTEOPOROSIS POSTMENOPAUSAL
     Dosage: UNK
     Route: 065
     Dates: start: 201307
  2. VITAMIN E                          /00110501/ [Concomitant]
  3. VITAMIN D                          /00107901/ [Concomitant]
  4. CALCIUM [Concomitant]

REACTIONS (3)
  - Uterine prolapse [Unknown]
  - Bladder prolapse [Unknown]
  - Back pain [Unknown]
